FAERS Safety Report 12146035 (Version 1)
Quarter: 2016Q1

REPORT INFORMATION
  Report Type: Spontaneous
  Country: US (occurrence: US)
  Receive Date: 20160303
  Receipt Date: 20160303
  Transmission Date: 20160526
  Serious: No
  Sender: FDA-Public Use
  Company Number: US-ABBVIE-15P-163-1510515-00

PATIENT
  Age: 42 Year
  Sex: Male

DRUGS (1)
  1. ANDROGEL [Suspect]
     Active Substance: TESTOSTERONE
     Indication: BLOOD TESTOSTERONE DECREASED
     Dosage: PACKET
     Route: 061
     Dates: start: 201506

REACTIONS (10)
  - Loss of libido [Recovered/Resolved]
  - Mood swings [Recovered/Resolved]
  - Apathy [Unknown]
  - Drug ineffective [Recovered/Resolved]
  - Asthenia [Recovered/Resolved]
  - Malaise [Not Recovered/Not Resolved]
  - Product odour abnormal [Not Recovered/Not Resolved]
  - Product physical consistency issue [Not Recovered/Not Resolved]
  - Abnormal dreams [Recovered/Resolved]
  - Nausea [Not Recovered/Not Resolved]

NARRATIVE: CASE EVENT DATE: 20151128
